FAERS Safety Report 11910996 (Version 1)
Quarter: 2016Q1

REPORT INFORMATION
  Report Type: Spontaneous
  Country: US (occurrence: None)
  Receive Date: 20160111
  Receipt Date: 20160111
  Transmission Date: 20160526
  Serious: No
  Sender: FDA-Public Use
  Company Number: None

PATIENT
  Age: 68 Year
  Sex: Female
  Weight: 76.66 kg

DRUGS (12)
  1. ESTRACE [Suspect]
     Active Substance: ESTRADIOL
     Indication: VULVOVAGINAL DRYNESS
     Route: 067
  2. ESTRACE [Suspect]
     Active Substance: ESTRADIOL
     Indication: URINARY TRACT INFECTION
     Route: 067
  3. AZO CRANBERRY TABLES [Concomitant]
  4. DILTIAZEM [Concomitant]
     Active Substance: DILTIAZEM
  5. GEMFIBROZIL. [Concomitant]
     Active Substance: GEMFIBROZIL
  6. MIRAPEX [Concomitant]
     Active Substance: PRAMIPEXOLE DIHYDROCHLORIDE
  7. VITAMIN D3 [Concomitant]
     Active Substance: CHOLECALCIFEROL
  8. COMTAN [Concomitant]
     Active Substance: ENTACAPONE
  9. CLONAZEPAM. [Concomitant]
     Active Substance: CLONAZEPAM
  10. SINEMET [Concomitant]
     Active Substance: CARBIDOPA\LEVODOPA
  11. MULTI VITAMIN [Concomitant]
     Active Substance: VITAMINS
  12. LD ASPIRIN [Concomitant]

REACTIONS (3)
  - Vulvovaginal discomfort [None]
  - Feeling hot [None]
  - Vulvovaginal pruritus [None]

NARRATIVE: CASE EVENT DATE: 20160107
